FAERS Safety Report 5299020-7 (Version None)
Quarter: 2007Q2

REPORT INFORMATION
  Report Type: 
  Country: None (occurrence: None)
  Receive Date: 20070417
  Receipt Date: 20070403
  Transmission Date: 20071010
  Serious: Yes (Other)
  Sender: FDA-Public Use
  Company Number: US-AMGEN-US208136

PATIENT
  Sex: Male

DRUGS (25)
  1. PANITUMUMAB [Suspect]
     Indication: COLORECTAL CANCER
     Route: 042
     Dates: start: 20060503, end: 20070103
  2. OXALIPLATIN [Concomitant]
     Route: 042
  3. FLUOROURACIL [Concomitant]
     Route: 042
  4. LEUCOVORIN CALCIUM [Concomitant]
     Route: 042
  5. BEVACIZUMAB [Concomitant]
     Route: 042
  6. MAXZIDE [Concomitant]
     Route: 048
     Dates: start: 20030101
  7. ATENOLOL [Concomitant]
     Route: 048
     Dates: start: 20030101
  8. LOTENSIN [Concomitant]
     Route: 048
     Dates: start: 20030101
  9. GLUCOPHAGE [Concomitant]
     Route: 048
     Dates: start: 20030101
  10. GLYBURIDE [Concomitant]
     Route: 048
     Dates: start: 20030101
  11. AVANDIA [Concomitant]
     Route: 048
     Dates: start: 20030101
  12. DIGITEK [Concomitant]
     Route: 048
     Dates: start: 20030101
  13. LIPITOR [Concomitant]
     Route: 048
     Dates: start: 20030101
  14. NEURONTIN [Concomitant]
     Route: 048
     Dates: start: 20030101
  15. COUMADIN [Concomitant]
     Route: 048
     Dates: start: 20030101
  16. BENADRYL [Concomitant]
     Route: 048
     Dates: start: 20060503
  17. TYLENOL [Concomitant]
     Route: 048
     Dates: start: 20060503
  18. DECADRON [Concomitant]
     Route: 048
     Dates: start: 20060503
  19. KYTRIL [Concomitant]
     Route: 042
     Dates: start: 20060503
  20. ZOFRAN [Concomitant]
     Route: 048
     Dates: start: 20060503
  21. MINOCYCLINE HCL [Concomitant]
     Route: 048
     Dates: start: 20060511
  22. CLEOCIN HYDROCHLORIDE [Concomitant]
     Route: 061
     Dates: start: 20060511
  23. KAOPECTATE [Concomitant]
     Route: 048
     Dates: start: 20060511
  24. PERCOCET [Concomitant]
     Route: 048
     Dates: start: 20060712
  25. IMODIUM [Concomitant]
     Route: 048
     Dates: start: 20060913

REACTIONS (2)
  - HYPOMAGNESAEMIA [None]
  - PALPITATIONS [None]
